FAERS Safety Report 9719290 (Version 2)
Quarter: 2013Q4

REPORT INFORMATION
  Report Type: Report from Study
  Country: BR (occurrence: BR)
  Receive Date: 20131127
  Receipt Date: 20131230
  Transmission Date: 20140711
  Serious: Yes (Death, Hospitalization, Other)
  Sender: FDA-Public Use
  Company Number: PHHY2013BR136739

PATIENT
  Age: 97 Year
  Sex: Male
  Weight: 52 kg

DRUGS (4)
  1. DIOVAN [Suspect]
     Indication: HEART RATE ABNORMAL
     Dosage: 80 MG
     Route: 048
  2. DIOVAN [Suspect]
     Dosage: 120 MG
     Route: 048
     Dates: end: 201207
  3. PANTOPRAZOLE [Concomitant]
     Indication: ABDOMINAL PAIN UPPER
     Dosage: 1 DF, (20 MG), PER DAY
     Route: 048
     Dates: end: 201207
  4. PANTOPRAZOLE [Concomitant]
     Indication: DYSPEPSIA

REACTIONS (7)
  - Multi-organ failure [Fatal]
  - Infection [Fatal]
  - Pneumonia [Unknown]
  - Pyrexia [Unknown]
  - Cough [Unknown]
  - Urinary retention [Unknown]
  - Cardiac disorder [Unknown]
